FAERS Safety Report 7712061-2 (Version None)
Quarter: 2011Q3

REPORT INFORMATION
  Report Type: 
  Country: None (occurrence: None)
  Receive Date: 20110826
  Receipt Date: 20110822
  Transmission Date: 20111222
  Serious: Yes (Other)
  Sender: FDA-Public Use
  Company Number: DE-SANOFI-AVENTIS-2011SA053760

PATIENT
  Age: 76 Year
  Sex: Male

DRUGS (2)
  1. JEVTANA KIT [Suspect]
     Route: 051
     Dates: start: 20110101, end: 20110101
  2. JEVTANA KIT [Suspect]
     Indication: PROSTATE CANCER
     Route: 051
     Dates: start: 20110101, end: 20110101

REACTIONS (5)
  - DELIRIUM [None]
  - DISORIENTATION [None]
  - NEUROTOXICITY [None]
  - CONFUSIONAL STATE [None]
  - HALLUCINATION [None]
